FAERS Safety Report 5373470-2 (Version None)
Quarter: 2007Q2

REPORT INFORMATION
  Report Type: 
  Country: None (occurrence: None)
  Receive Date: 20070626
  Receipt Date: 20070626
  Transmission Date: 20071010
  Serious: Yes (Other)
  Sender: FDA-Public Use
  Company Number: None

PATIENT
  Age: 56 Year
  Sex: Male
  Weight: 99.7913 kg

DRUGS (7)
  1. AMLODIPINE BESYLATE AND BENAZEPRIL HCL [Suspect]
     Indication: HYPERTENSION
     Dosage: 10-20 MG ONCE DAILY PO
     Route: 048
     Dates: start: 20070603, end: 20070625
  2. TERAZOSIN HCL [Concomitant]
  3. POTASSIUM CHLORIDE [Concomitant]
  4. METFORMIN HCL [Concomitant]
  5. CRESTOR [Concomitant]
  6. ASPIRIN [Concomitant]
  7. LOTREL [Suspect]

REACTIONS (2)
  - AGGRESSION [None]
  - NIGHTMARE [None]
